FAERS Safety Report 19680301 (Version 1)
Quarter: 2021Q3

REPORT INFORMATION
  Report Type: Spontaneous
  Country: GB (occurrence: GB)
  Receive Date: 20210810
  Receipt Date: 20210810
  Transmission Date: 20211014
  Serious: Yes (Life-Threatening, Hospitalization)
  Sender: FDA-Public Use
  Company Number: GB-TEVA-157063ISR

PATIENT
  Age: 47 Year
  Sex: Male
  Weight: 80 kg

DRUGS (9)
  1. AMOXICILLIN W/CLAVULANIC ACID [Suspect]
     Active Substance: AMOXICILLIN\CLAVULANIC ACID
     Dosage: 500/125MG TDS
     Route: 048
     Dates: start: 20070305, end: 20070413
  2. FUROSEMIDE. [Concomitant]
     Active Substance: FUROSEMIDE
     Dosage: 20 MILLIGRAM DAILY;
     Route: 048
  3. AMOXICILLIN W/CLAVULANIC ACID [Suspect]
     Active Substance: AMOXICILLIN\CLAVULANIC ACID
     Indication: ENDOCARDITIS
     Dosage: 1200 MILLIGRAM DAILY;
     Route: 042
     Dates: start: 20070413, end: 20070415
  4. PARACETAMOL [Concomitant]
     Active Substance: ACETAMINOPHEN
     Indication: PAIN
     Dosage: AT STANDARD DOSE, IN COMBINATION WITH DIHYDROCODEINE
     Dates: start: 20070122, end: 20070306
  5. LOPRAZOLAM [Concomitant]
     Active Substance: LOPRAZOLAM
     Indication: SLEEP DISORDER
     Dosage: 1 MILLIGRAM DAILY;  TAKEN AT NIGHT. 14 TABLETS ONLY
     Route: 048
     Dates: end: 20070405
  6. IBUPROFEN. [Concomitant]
     Active Substance: IBUPROFEN
     Indication: PAIN
     Dosage: 200 MGX3/DAY
     Route: 048
     Dates: start: 20070206, end: 20070313
  7. BENZYLPENICILLIN [Concomitant]
     Active Substance: PENICILLIN G
     Indication: ENDOCARDITIS
     Dosage: 7200 MILLIGRAM DAILY;
     Route: 042
     Dates: start: 20070202, end: 20070306
  8. GENTAMICIN. [Concomitant]
     Active Substance: GENTAMICIN
     Indication: PRODUCT USED FOR UNKNOWN INDICATION
     Dosage: VARIABLE DOSES ACCORDING TO LEVELS
     Dates: start: 20070129, end: 20070215
  9. DIHYDROCODEINE [Concomitant]
     Active Substance: DIHYDROCODEINE
     Indication: PAIN
     Dosage: AT STANDARD DOSE
     Dates: start: 20070122, end: 20070306

REACTIONS (1)
  - Hepatic failure [Recovering/Resolving]

NARRATIVE: CASE EVENT DATE: 20070413
